FAERS Safety Report 4526036-8 (Version None)
Quarter: 2004Q4

REPORT INFORMATION
  Report Type: 
  Country: None (occurrence: None)
  Receive Date: 20041210
  Receipt Date: 20041129
  Transmission Date: 20050328
  Serious: Yes (Hospitalization)
  Sender: FDA-Public Use
  Company Number: 200410657

PATIENT
  Age: 33 Year
  Sex: Female

DRUGS (1)
  1. BOTOX [Suspect]
     Indication: SKIN WRINKLING

REACTIONS (3)
  - BOTULISM [None]
  - NEUROMUSCULAR BLOCKADE [None]
  - THERAPY NON-RESPONDER [None]
